APPROVED DRUG PRODUCT: ADZENYS ER
Active Ingredient: AMPHETAMINE
Strength: EQ 1.25MG BASE/ML
Dosage Form/Route: SUSPENSION, EXTENDED RELEASE;ORAL
Application: N204325 | Product #001
Applicant: NEOS THERAPEUTICS INC
Approved: Sep 15, 2017 | RLD: Yes | RS: No | Type: DISCN

PATENTS:
Patent 8709491 | Expires: Jun 28, 2032
Patent 9017731 | Expires: Jun 28, 2032
Patent 9265737 | Expires: Jun 28, 2032